FAERS Safety Report 4603838-0 (Version None)
Quarter: 2005Q1

REPORT INFORMATION
  Report Type: 
  Country: None (occurrence: None)
  Receive Date: 20050308
  Receipt Date: 20050302
  Transmission Date: 20050727
  Serious: Yes (Hospitalization)
  Sender: FDA-Public Use
  Company Number: 2005UW02764

PATIENT
  Age: 81 Year
  Sex: Male
  Weight: 78.0187 kg

DRUGS (3)
  1. IRESSA [Suspect]
     Indication: NON-SMALL CELL LUNG CANCER
     Dosage: 250 MG QD PO
     Route: 048
     Dates: start: 20041108, end: 20050211
  2. IRESSA [Suspect]
     Indication: NON-SMALL CELL LUNG CANCER
     Dosage: 250 MG QD PO
     Route: 048
     Dates: start: 20050224, end: 20050228
  3. DOCETAXEL [Suspect]
     Indication: NON-SMALL CELL LUNG CANCER
     Dosage: 46 MG WEEK
     Dates: start: 20041108

REACTIONS (6)
  - BIOPSY KIDNEY ABNORMAL [None]
  - DISEASE PROGRESSION [None]
  - HAEMATEMESIS [None]
  - INTESTINAL ISCHAEMIA [None]
  - PNEUMATOSIS CYSTOIDES INTESTINALIS [None]
  - RESPIRATORY FAILURE [None]
